FAERS Safety Report 4527855-4 (Version None)
Quarter: 2004Q4

REPORT INFORMATION
  Report Type: 
  Country: None (occurrence: None)
  Receive Date: 20041123
  Receipt Date: 20040806
  Transmission Date: 20050328
  Serious: Yes (Hospitalization, Other)
  Sender: FDA-Public Use
  Company Number: ATO-04-0748

PATIENT
  Sex: Female

DRUGS (3)
  1. TRISENOX [Suspect]
     Indication: ACUTE PROMYELOCYTIC LEUKAEMIA
     Dosage: 0.15 MG/KG/DAY (0.15 MG/KG, DAILY), IVI
     Dates: start: 20040718, end: 20040718
  2. TRETINOIN [Suspect]
     Indication: ACUTE PROMYELOCYTIC LEUKAEMIA
     Dosage: 40 MG (45 MG/M2, QD), PER ORAL
     Route: 048
     Dates: start: 20040708, end: 20040708
  3. MYLOTARG [Suspect]
     Indication: ACUTE PROMYELOCYTIC LEUKAEMIA
     Dosage: 19 MG
     Dates: start: 20040708, end: 20040708

REACTIONS (2)
  - FEBRILE NEUTROPENIA [None]
  - HEADACHE [None]
